FAERS Safety Report 9248080 (Version 2)
Quarter: 2013Q3

REPORT INFORMATION
  Report Type: Spontaneous
  Country: US (occurrence: US)
  Receive Date: 20130423
  Receipt Date: 20130705
  Transmission Date: 20140515
  Serious: Yes (Disabling, Other)
  Sender: FDA-Public Use
  Company Number: US-ASTRAZENECA-2013SE27427

PATIENT
  Age: 34 Year
  Sex: Male

DRUGS (18)
  1. NEXIUM [Suspect]
     Indication: GASTROOESOPHAGEAL REFLUX DISEASE
     Route: 048
     Dates: start: 2009, end: 2011
  2. NEXIUM [Suspect]
     Indication: HELICOBACTER INFECTION
     Route: 048
     Dates: start: 2009, end: 2011
  3. NEXIUM [Suspect]
     Indication: GASTROOESOPHAGEAL REFLUX DISEASE
     Route: 048
     Dates: start: 201107
  4. NEXIUM [Suspect]
     Indication: HELICOBACTER INFECTION
     Route: 048
     Dates: start: 201107
  5. OMEPRAZOLE [Suspect]
     Route: 048
  6. PRILOSEC OTC [Suspect]
     Route: 048
  7. PANTOPRAZOLE [Concomitant]
     Dates: start: 2011
  8. TAGAMET [Concomitant]
     Dates: start: 2007
  9. TUMS [Concomitant]
  10. ALKA SELTZER [Concomitant]
  11. CYMBALTA [Concomitant]
  12. XANAX [Concomitant]
  13. SEROQUEL [Concomitant]
  14. MORPHINE SULPH ER [Concomitant]
  15. TOPIRAMATE [Concomitant]
     Dosage: TWICE DAILY EVERY 12 HOURS
  16. BACLOFEN [Concomitant]
  17. NAPROXEN [Concomitant]
     Dates: start: 201107
  18. GEODON [Concomitant]
     Dates: start: 201107

REACTIONS (25)
  - Mental disorder [Unknown]
  - Lumbar radiculopathy [Unknown]
  - Stress [Unknown]
  - Myelopathy [Unknown]
  - Intervertebral disc degeneration [Unknown]
  - Intervertebral disc displacement [Unknown]
  - Intervertebral disc protrusion [Unknown]
  - Radiculitis [Unknown]
  - Osteoporosis [Unknown]
  - Back pain [Unknown]
  - Pneumonia [Unknown]
  - Upper respiratory tract infection [Unknown]
  - Road traffic accident [Unknown]
  - Panic attack [Unknown]
  - Neuropathy peripheral [Unknown]
  - Facet joint syndrome [Unknown]
  - Spinal osteoarthritis [Unknown]
  - Neck pain [Unknown]
  - Spinal column stenosis [Unknown]
  - Spondylolisthesis [Unknown]
  - Bone density decreased [Unknown]
  - Multiple fractures [Unknown]
  - Hypovitaminosis [Unknown]
  - Agoraphobia [Unknown]
  - Lumbar spinal stenosis [Unknown]
